FAERS Safety Report 6157043-X (Version None)
Quarter: 2009Q2

REPORT INFORMATION
  Report Type: 
  Country: None (occurrence: None)
  Receive Date: 20090416
  Receipt Date: 20090413
  Transmission Date: 20091009
  Serious: Yes (Hospitalization)
  Sender: FDA-Public Use
  Company Number: US-AVENTIS-200913087US

PATIENT
  Sex: Male

DRUGS (7)
  1. LANTUS [Suspect]
     Route: 058
  2. OPTICLIK (INSULIN INJECTION PEN) [Suspect]
  3. PIROXICAM [Concomitant]
     Dosage: DOSE: 1 TAB
  4. SIMVASTATIN [Concomitant]
     Dosage: DOSE: 1 TAB
  5. CITALOPRAM HYDROBROMIDE [Concomitant]
     Dosage: DOSE: 1 TAB
  6. HYDROCHLOROTHIAZIDE [Concomitant]
     Dosage: DOSE: 1 TAB
  7. NOVOLOG [Concomitant]
     Dosage: DOSE: UNK

REACTIONS (1)
  - KETOACIDOSIS [None]
